FAERS Safety Report 8346366-1 (Version None)
Quarter: 2012Q2

REPORT INFORMATION
  Report Type: 
  Country: None (occurrence: None)
  Receive Date: 20120509
  Receipt Date: 20120503
  Transmission Date: 20120825
  Serious: Yes (Hospitalization, Other)
  Sender: FDA-Public Use
  Company Number: GB-US-EMD SERONO, INC.-7022850

PATIENT
  Sex: Female

DRUGS (2)
  1. REBIF [Suspect]
     Dates: start: 20110501, end: 20120101
  2. REBIF [Suspect]
     Indication: PRODUCT USED FOR UNKNOWN INDICATION
     Dates: start: 20100301, end: 20101008

REACTIONS (11)
  - OVARIAN CYST [None]
  - MOBILITY DECREASED [None]
  - SYNCOPE [None]
  - PYELONEPHRITIS [None]
  - BACTERIAL INFECTION [None]
  - PYREXIA [None]
  - GAIT DISTURBANCE [None]
  - FALLOPIAN TUBE ABSCESS [None]
  - INCONTINENCE [None]
  - SEPSIS [None]
  - MALAISE [None]
